FAERS Safety Report 6154126-5 (Version None)
Quarter: 2009Q2

REPORT INFORMATION
  Report Type: 
  Country: None (occurrence: None)
  Receive Date: 20090414
  Receipt Date: 20090409
  Transmission Date: 20091009
  Serious: Yes (Other)
  Sender: FDA-Public Use
  Company Number: US-BAYER-200910246BCC

PATIENT
  Age: 28 Year
  Sex: Male
  Weight: 82 kg

DRUGS (4)
  1. ORIGINAL ALKA SELTZER [Suspect]
     Indication: DYSPEPSIA
     Dosage: UNKNOWN BOTTLE COUNT
     Route: 048
     Dates: start: 20080601, end: 20081125
  2. CARAFATE [Concomitant]
  3. ZANTAC [Concomitant]
  4. PRILOSEC [Concomitant]

REACTIONS (4)
  - ABDOMINAL PAIN UPPER [None]
  - GASTRIC ULCER [None]
  - HAEMATEMESIS [None]
  - VOMITING [None]
